FAERS Safety Report 4554953-1 (Version None)
Quarter: 2004Q4

REPORT INFORMATION
  Report Type: 
  Country: None (occurrence: None)
  Receive Date: 20041222
  Receipt Date: 20041109
  Transmission Date: 20050328
  Serious: No
  Sender: FDA-Public Use
  Company Number: 210282

PATIENT
  Age: 63 Year
  Sex: Male

DRUGS (16)
  1. AVASTIN [Suspect]
     Indication: COLORECTAL CANCER METASTATIC
     Dosage: 440 MG, Q2W, INTRAVENOUS
     Route: 042
     Dates: start: 20040628
  2. OXALIPLATIN [Concomitant]
  3. LEUCOVORIN (LEUCOVORIN) [Concomitant]
  4. FLUOROURACIL [Concomitant]
  5. IRINOTECAN (IRINOTECAN HYDROCHLORIDE) [Concomitant]
  6. ARANESP [Concomitant]
  7. KLONOPIN [Concomitant]
  8. PERCOCET [Concomitant]
  9. OXYCODONE HCL [Concomitant]
  10. IRON (IRON NOS) [Concomitant]
  11. ZOLOFT [Concomitant]
  12. OXYCONTIN [Concomitant]
  13. DEMEROL [Concomitant]
  14. MORPHINE [Concomitant]
  15. DURAGESIC [Concomitant]
  16. NEURONTIN [Concomitant]

REACTIONS (1)
  - RECTAL HAEMORRHAGE [None]
